FAERS Safety Report 4993528-7 (Version None)
Quarter: 2006Q2

REPORT INFORMATION
  Report Type: 
  Country: None (occurrence: None)
  Receive Date: 20060504
  Receipt Date: 20060504
  Transmission Date: 20061013
  Serious: Yes (Hospitalization)
  Sender: FDA-Public Use
  Company Number: None

PATIENT
  Sex: Female
  Weight: 67 kg

DRUGS (1)
  1. TAXOL [Suspect]
     Dosage: DRUG-ELUTING CORONARY STENT

REACTIONS (4)
  - MEDICAL DEVICE COMPLICATION [None]
  - PRURITUS [None]
  - RASH [None]
  - THROAT TIGHTNESS [None]
